FAERS Safety Report 4819614-X (Version None)
Quarter: 2005Q4

REPORT INFORMATION
  Report Type: 
  Country: None (occurrence: None)
  Receive Date: 20051102
  Receipt Date: 20051102
  Transmission Date: 20060501
  Serious: Yes (Other)
  Sender: FDA-Public Use
  Company Number: None

PATIENT
  Sex: Female
  Weight: 62.5964 kg

DRUGS (1)
  1. FEXOFENADINE HCL [Suspect]
     Indication: MULTIPLE ALLERGIES
     Dosage: 180MG ONE PO QD
     Route: 048
     Dates: start: 20051017

REACTIONS (2)
  - ANXIETY [None]
  - PHARMACEUTICAL PRODUCT COMPLAINT [None]
